FAERS Safety Report 4830155-6 (Version None)
Quarter: 2005Q4

REPORT INFORMATION
  Report Type: 
  Country: None (occurrence: None)
  Receive Date: 20051117
  Receipt Date: 20050901
  Transmission Date: 20060501
  Serious: Yes (Hospitalization)
  Sender: FDA-Public Use
  Company Number: US-MERCK-0509USA00450

PATIENT
  Age: 57 Year
  Sex: Female
  Weight: 57 kg

DRUGS (19)
  1. VIOXX [Suspect]
     Indication: PAIN IN EXTREMITY
     Route: 048
     Dates: start: 20000623, end: 20000708
  2. VIOXX [Suspect]
     Route: 048
     Dates: start: 20000708, end: 20000905
  3. VIOXX [Suspect]
     Route: 048
     Dates: start: 20000905, end: 20001009
  4. VIOXX [Suspect]
     Indication: ARTHRALGIA
     Route: 048
     Dates: start: 20000623, end: 20000708
  5. VIOXX [Suspect]
     Route: 048
     Dates: start: 20000708, end: 20000905
  6. VIOXX [Suspect]
     Route: 048
     Dates: start: 20000905, end: 20001009
  7. CEFACLOR [Concomitant]
     Indication: BACTERIAL INFECTION
     Route: 065
  8. CIPRO [Concomitant]
     Indication: BACTERIAL INFECTION
     Route: 065
  9. LORATADINE [Concomitant]
     Route: 065
  10. DOXYCYCLINE [Concomitant]
     Indication: INFECTION
     Route: 065
  11. FUROSEMIDE [Concomitant]
     Indication: HYPERTENSION
     Route: 065
     Dates: start: 20000627, end: 20001101
  12. FUROSEMIDE [Concomitant]
     Indication: OEDEMA
     Route: 065
     Dates: start: 20000627, end: 20001101
  13. GUAIFENESIN [Concomitant]
     Route: 065
  14. HYDROCODONE BITARTRATE + ACETAMINOPHEN [Concomitant]
     Indication: PAIN
     Route: 065
  15. METRONIDAZOLE [Concomitant]
     Indication: RESPIRATORY TRACT INFECTION
     Route: 065
  16. PREMPRO [Concomitant]
     Indication: HORMONE REPLACEMENT THERAPY
     Route: 065
     Dates: start: 19990113, end: 20010101
  17. PREVACID [Concomitant]
     Indication: GASTROOESOPHAGEAL REFLUX DISEASE
     Route: 065
  18. ZYRTEC [Concomitant]
     Indication: HYPERSENSITIVITY
     Route: 065
  19. HYOSCYAMINE [Concomitant]
     Indication: IRRITABLE BOWEL SYNDROME
     Route: 065

REACTIONS (12)
  - ANGINA PECTORIS [None]
  - ANXIETY [None]
  - BACTERIAL INFECTION [None]
  - BLOOD CHOLESTEROL INCREASED [None]
  - DEPRESSION [None]
  - GASTROOESOPHAGEAL REFLUX DISEASE [None]
  - HYPERTENSION [None]
  - INSOMNIA [None]
  - MYOCARDIAL INFARCTION [None]
  - NAUSEA [None]
  - OEDEMA [None]
  - PERIPHERAL VASCULAR DISORDER [None]
